FAERS Safety Report 6356545-0 (Version None)
Quarter: 2009Q3

REPORT INFORMATION
  Report Type: 
  Country: None (occurrence: None)
  Receive Date: 20090911
  Receipt Date: 20090911
  Transmission Date: 20100115
  Serious: Yes (Life-Threatening)
  Sender: FDA-Public Use
  Company Number: None

PATIENT
  Age: 54 Year
  Sex: Female
  Weight: 61.2356 kg

DRUGS (1)
  1. FLUDROCORTISONE ACETATE [Suspect]
     Indication: HYPOTENSION
     Dosage: .2MG 1/DAY PO
     Route: 048
     Dates: start: 20090711, end: 20090909

REACTIONS (7)
  - CONSTIPATION [None]
  - DRY EYE [None]
  - DRY MOUTH [None]
  - INSOMNIA [None]
  - MIGRAINE [None]
  - NAUSEA [None]
  - SUICIDAL IDEATION [None]
